FAERS Safety Report 10046450 (Version 1)
Quarter: 2014Q1

REPORT INFORMATION
  Report Type: Spontaneous
  Country: US (occurrence: US)
  Receive Date: 20140331
  Receipt Date: 20140331
  Transmission Date: 20141002
  Serious: No
  Sender: FDA-Public Use
  Company Number: US-BIOGENIDEC-2014BI027695

PATIENT
  Age: 47 Year
  Sex: Female

DRUGS (11)
  1. TECFIDERA [Suspect]
     Indication: MULTIPLE SCLEROSIS
     Route: 048
     Dates: start: 20140226
  2. WARFARIN [Concomitant]
  3. GABAPENTIN [Concomitant]
  4. LEVOTHYROXINE [Concomitant]
  5. DULOXETINE [Concomitant]
  6. CARVEDILOL [Concomitant]
  7. TRAMADOL [Concomitant]
  8. ALPRAZOLAM [Concomitant]
  9. BACLOFEN [Concomitant]
  10. TIZANIDINE [Concomitant]
  11. NUVIGIL [Concomitant]

REACTIONS (4)
  - Pain [Unknown]
  - Dehydration [Unknown]
  - Abdominal pain [Unknown]
  - Diarrhoea [Unknown]
